FAERS Safety Report 8917377 (Version 2)
Quarter: 2013Q1

REPORT INFORMATION
  Report Type: Spontaneous
  Country: US (occurrence: US)
  Receive Date: 20121119
  Receipt Date: 20130307
  Transmission Date: 20140127
  Serious: Yes (Death)
  Sender: FDA-Public Use
  Company Number: US-B.I. PHARMACEUTICALS,INC./RIDGEFIELD-2012-BI-00485BP

PATIENT
  Age: 75 Year
  Sex: Female
  Weight: 65.77 kg

DRUGS (16)
  1. PRADAXA [Suspect]
     Indication: ATRIAL FIBRILLATION
     Dosage: 300 MG
     Dates: start: 201111, end: 20111114
  2. DALIRESP [Concomitant]
     Dosage: 500 MG
  3. HYDROCODONE [Concomitant]
     Dosage: 10 MG
  4. XANAX [Concomitant]
     Dosage: 1 MG
  5. ASPIRIN [Concomitant]
     Dosage: 81 MG
  6. ATENOLOL [Concomitant]
     Dosage: 25 MG
  7. DILTIAZEM [Concomitant]
     Dosage: 270 MG
  8. COLACE [Concomitant]
     Dosage: 100 MG
  9. PAROXETINE [Concomitant]
     Dosage: 60 MG
  10. ADVAIR [Concomitant]
  11. HYDROCHLOROTHIAZIDE [Concomitant]
  12. SINGULAIR [Concomitant]
     Dosage: 10 MG
  13. NITROGLYCERIN [Concomitant]
     Dosage: 2.5 MG
  14. SIMVASTATIN [Concomitant]
     Dosage: 40 MG
  15. AMBIEN [Concomitant]
     Dosage: 10 MG
  16. HYDROXYZINE [Concomitant]
     Dosage: 50 MG

REACTIONS (1)
  - Gastrointestinal haemorrhage [Fatal]
